FAERS Safety Report 16786695 (Version 1)
Quarter: 2019Q3

REPORT INFORMATION
  Report Type: Report from Study
  Country: None (occurrence: SI)
  Receive Date: 20190909
  Receipt Date: 20190909
  Transmission Date: 20191005
  Serious: Yes (Death, Hospitalization)
  Sender: FDA-Public Use
  Company Number: SI-ABBVIE-19P-261-2902064-00

PATIENT
  Age: 70 Year
  Sex: Female

DRUGS (1)
  1. VENETOCLAX. [Suspect]
     Active Substance: VENETOCLAX
     Indication: MANTLE CELL LYMPHOMA
     Route: 048

REACTIONS (5)
  - Cytokine storm [Fatal]
  - Atrial fibrillation [Recovered/Resolved]
  - Infection [Fatal]
  - Disease progression [Fatal]
  - Septic shock [Fatal]

NARRATIVE: CASE EVENT DATE: 20190621
